FAERS Safety Report 21887247 (Version 2)
Quarter: 2023Q1

REPORT INFORMATION
  Report Type: Spontaneous
  Country: US (occurrence: US)
  Receive Date: 20230119
  Receipt Date: 20230209
  Transmission Date: 20230418
  Serious: Yes (Hospitalization)
  Sender: FDA-Public Use
  Company Number: US-JNJFOC-20230127415

PATIENT
  Age: 86 Year
  Sex: Female
  Weight: 95 kg

DRUGS (1)
  1. IBRUTINIB [Suspect]
     Active Substance: IBRUTINIB
     Indication: Mantle cell lymphoma
     Route: 048
     Dates: start: 20220922

REACTIONS (1)
  - IIIrd nerve paresis [Recovered/Resolved]

NARRATIVE: CASE EVENT DATE: 20221228
